FAERS Safety Report 7859077-3 (Version None)
Quarter: 2011Q3

REPORT INFORMATION
  Report Type: 
  Country: None (occurrence: None)
  Receive Date: 20110923
  Receipt Date: 20100428
  Transmission Date: 20111222
  Serious: Yes (Other)
  Sender: FDA-Public Use
  Company Number: 10-011

PATIENT
  Age: 16 Year
  Sex: Female

DRUGS (4)
  1. SINGULAIR [Concomitant]
  2. VERAMYST [Concomitant]
  3. ALLERGENIC EXTRACTS [Suspect]
     Indication: HYPERSENSITIVITY
     Dates: start: 20090817, end: 20100419
  4. ZYRTEC [Concomitant]

REACTIONS (1)
  - ALOPECIA [None]
